FAERS Safety Report 5416678-X (Version None)
Quarter: 2007Q3

REPORT INFORMATION
  Report Type: 
  Country: None (occurrence: None)
  Receive Date: 20070814
  Receipt Date: 20070731
  Transmission Date: 20080115
  Serious: Yes (Hospitalization)
  Sender: FDA-Public Use
  Company Number: TPG2007A00524

PATIENT
  Sex: Male

DRUGS (1)
  1. COMPETACT (PIOGLITAZONE HYDROCHLORIDE, METFORMIN HYDROCHLORIDE) [Suspect]
     Indication: DRUG USE FOR UNKNOWN INDICATION
     Dosage: PIOGLITAZONE/METFORMIN; PER ORAL
     Route: 048
     Dates: start: 20070401, end: 20070717

REACTIONS (8)
  - LIP SWELLING [None]
  - NO THERAPEUTIC RESPONSE [None]
  - OEDEMA PERIPHERAL [None]
  - PNEUMONIA [None]
  - PULMONARY FIBROSIS [None]
  - PULMONARY HYPERTENSION [None]
  - RESPIRATORY TRACT INFECTION [None]
  - WEIGHT INCREASED [None]
